FAERS Safety Report 9518966 (Version 3)
Quarter: 2013Q3

REPORT INFORMATION
  Report Type: Report from Study
  Country: BR (occurrence: BR)
  Receive Date: 20130912
  Receipt Date: 20130923
  Transmission Date: 20140515
  Serious: Yes (Disabling, Other)
  Sender: FDA-Public Use
  Company Number: BR-IPSEN BIOPHARMACEUTICALS, INC.-2013-3300

PATIENT
  Age: 63 Year
  Sex: Female
  Weight: 70.8 kg

DRUGS (3)
  1. LANREOTIDE [Suspect]
     Indication: CARCINOID TUMOUR
     Dosage: 120 MG
     Route: 058
     Dates: start: 20121002, end: 201302
  2. THYMOMODULIN [Concomitant]
     Indication: PRODUCT USED FOR UNKNOWN INDICATION
     Route: 048
     Dates: start: 20121202, end: 20121212
  3. FLUOXETIN [Concomitant]
     Indication: PRODUCT USED FOR UNKNOWN INDICATION
     Route: 048
     Dates: start: 20121202, end: 20121218

REACTIONS (1)
  - Deafness permanent [Not Recovered/Not Resolved]
